FAERS Safety Report 24103046 (Version 2)
Quarter: 2024Q3

REPORT INFORMATION
  Report Type: Spontaneous
  Country: US (occurrence: US)
  Receive Date: 20240717
  Receipt Date: 20240726
  Transmission Date: 20241017
  Serious: No
  Sender: TEVA
  Company Number: US-TEVA-VS-3221142

PATIENT
  Age: 84 Year
  Sex: Male

DRUGS (1)
  1. DIAZEPAM [Suspect]
     Active Substance: DIAZEPAM
     Indication: Nervous system disorder
     Route: 048
     Dates: start: 2024

REACTIONS (7)
  - Visual impairment [Unknown]
  - Product use in unapproved indication [Unknown]
  - Nervousness [Unknown]
  - Memory impairment [Unknown]
  - Insomnia [Unknown]
  - Weight decreased [Unknown]
  - Product prescribing error [Unknown]

NARRATIVE: CASE EVENT DATE: 20240101
